FAERS Safety Report 19139033 (Version 1)
Quarter: 2021Q2

REPORT INFORMATION
  Report Type: Spontaneous
  Country: US (occurrence: US)
  Receive Date: 20210414
  Receipt Date: 20210414
  Transmission Date: 20210717
  Serious: Yes (Hospitalization, Other)
  Sender: FDA-Public Use
  Company Number: None

PATIENT
  Age: 73 Year
  Sex: Female

DRUGS (17)
  1. DIMETHYL FUMARATE [Suspect]
     Active Substance: DIMETHYL FUMARATE
     Indication: MULTIPLE SCLEROSIS
     Route: 048
     Dates: start: 20200929
  2. CALCIUM/D [Concomitant]
     Dates: start: 20210120
  3. FISH OIL [Concomitant]
     Active Substance: FISH OIL
     Dates: start: 20210120
  4. GLUCOS/CHOND [Concomitant]
     Dates: start: 20210120
  5. AMPYRA [Concomitant]
     Active Substance: DALFAMPRIDINE
     Dates: start: 20130729
  6. BENZONATATE. [Concomitant]
     Active Substance: BENZONATATE
     Dates: start: 20170821
  7. IPRATROPIUM [Concomitant]
     Active Substance: IPRATROPIUM
     Dates: start: 20200929
  8. GABAPENTIN. [Concomitant]
     Active Substance: GABAPENTIN
     Dates: start: 20190125
  9. TOVIAZ [Concomitant]
     Active Substance: FESOTERODINE FUMARATE
     Dates: start: 20160120
  10. FLUCONAZOLE. [Concomitant]
     Active Substance: FLUCONAZOLE
     Dates: start: 20170808
  11. IBUPROFEN. [Concomitant]
     Active Substance: IBUPROFEN
     Dates: start: 20100504
  12. AZELASTINE. [Concomitant]
     Active Substance: AZELASTINE HYDROCHLORIDE
     Dates: start: 20180308
  13. FLAXSEED [Concomitant]
     Active Substance: FLAX SEED
     Dates: start: 20210120
  14. BACLOFEN. [Concomitant]
     Active Substance: BACLOFEN
     Dates: start: 20100504
  15. ESCITALOPRAM [Concomitant]
     Active Substance: ESCITALOPRAM OXALATE
     Dates: start: 20100504
  16. OFLOXACIN. [Concomitant]
     Active Substance: OFLOXACIN
     Dates: start: 20210120
  17. VITAMIN E [Concomitant]
     Active Substance: .ALPHA.-TOCOPHEROL
     Dates: start: 20210120

REACTIONS (3)
  - Fall [None]
  - Muscular weakness [None]
  - Heart rate decreased [None]

NARRATIVE: CASE EVENT DATE: 20210318
